FAERS Safety Report 19620166 (Version 1)
Quarter: 2021Q3

REPORT INFORMATION
  Report Type: Spontaneous
  Country: US (occurrence: US)
  Receive Date: 20210727
  Receipt Date: 20210727
  Transmission Date: 20211014
  Serious: Yes (Hospitalization, Disabling)
  Sender: FDA-Public Use
  Company Number: None

PATIENT
  Age: 78 Year
  Sex: Male
  Weight: 109.35 kg

DRUGS (14)
  1. FERROUS SULFATE. [Concomitant]
     Active Substance: FERROUS SULFATE
  2. COLACE CLEAR [Concomitant]
     Active Substance: DOCUSATE SODIUM
  3. FUROSEMIDE. [Concomitant]
     Active Substance: FUROSEMIDE
  4. CEFTRIAXONE. [Suspect]
     Active Substance: CEFTRIAXONE
     Indication: OSTEOMYELITIS
     Route: 042
     Dates: start: 20210628, end: 20210719
  5. MIRALAX MIX?IN PAX [Concomitant]
  6. ELIQUIS [Concomitant]
     Active Substance: APIXABAN
  7. CEFTRIAXONE. [Suspect]
     Active Substance: CEFTRIAXONE
     Indication: OSTEOMYELITIS
     Route: 042
     Dates: start: 20210628, end: 20210719
  8. LOSARTAN. [Concomitant]
     Active Substance: LOSARTAN
  9. AMPICILLIN [Concomitant]
     Active Substance: AMPICILLIN
     Dates: start: 20210628
  10. ATORVASTATIN CALCIUM. [Concomitant]
     Active Substance: ATORVASTATIN CALCIUM
  11. LEVOTHYROXINE SODIUM. [Concomitant]
     Active Substance: LEVOTHYROXINE SODIUM
  12. ASCORBIC ACID. [Concomitant]
     Active Substance: ASCORBIC ACID
  13. METFORMIN HCL [Concomitant]
     Active Substance: METFORMIN HYDROCHLORIDE
  14. HEPARIN LOCK [Concomitant]
     Dates: start: 20210628

REACTIONS (3)
  - Cholecystectomy [None]
  - Intervertebral discitis [None]
  - Cholelithiasis [None]

NARRATIVE: CASE EVENT DATE: 20210719
